FAERS Safety Report 4864180-6 (Version None)
Quarter: 2005Q4

REPORT INFORMATION
  Report Type: 
  Country: None (occurrence: None)
  Receive Date: 20051219
  Receipt Date: 20051206
  Transmission Date: 20060501
  Serious: Yes (Other)
  Sender: FDA-Public Use
  Company Number: 2005166448

PATIENT
  Age: 75 Year
  Sex: Male

DRUGS (10)
  1. UNASYN [Suspect]
     Indication: ENDOCARDITIS
     Dosage: 3 GRAM, INTRAVENOUS
     Route: 042
     Dates: start: 20051203, end: 20051205
  2. OMEPRAZOLE [Concomitant]
  3. GASTROM (ECABET MONOSODIUM) [Concomitant]
  4. MUCOSTA (REBAMIPIDE) [Concomitant]
  5. PANTOSIN (PANTETHINE) [Concomitant]
  6. NAUZELIN (DOMPERIDONE) [Concomitant]
  7. MYONAL (EPERISONE HYDROCHLORIDE) [Concomitant]
  8. NEUROTROPIN (ORGAN LYSATE, STANDARDIZED) [Concomitant]
  9. RHYTHMY (RILMAZAFONE) [Concomitant]
  10. PURSENNID (SENNA LEAF) [Concomitant]

REACTIONS (4)
  - CONVULSION [None]
  - HYPOGLYCAEMIA [None]
  - LOSS OF CONSCIOUSNESS [None]
  - TONIC CONVULSION [None]
